FAERS Safety Report 18922536 (Version 1)
Quarter: 2021Q1

REPORT INFORMATION
  Report Type: Spontaneous
  Country: US (occurrence: US)
  Receive Date: 20210222
  Receipt Date: 20210222
  Transmission Date: 20210420
  Serious: No
  Sender: FDA-Public Use
  Company Number: None

PATIENT
  Age: 69 Year
  Sex: Female
  Weight: 58.5 kg

DRUGS (5)
  1. ASPIRIN 81MG [Concomitant]
     Active Substance: ASPIRIN
  2. TUMS 500MG [Concomitant]
  3. IMODIUM 2MG [Concomitant]
  4. VITAMIN B12 2000MCG [Concomitant]
  5. IBRANCE [Suspect]
     Active Substance: PALBOCICLIB
     Indication: BREAST CANCER METASTATIC
     Dosage: ?          OTHER FREQUENCY:QD X21D, 7D OFF;?
     Route: 048
     Dates: start: 20190417, end: 20200805

REACTIONS (5)
  - Blood lactate dehydrogenase increased [None]
  - Blood bilirubin unconjugated increased [None]
  - Reticulocyte count increased [None]
  - Anaemia [None]
  - Coombs test negative [None]

NARRATIVE: CASE EVENT DATE: 20200805
